FAERS Safety Report 15630781 (Version 10)
Quarter: 2021Q3

REPORT INFORMATION
  Report Type: Other
  Country: DE (occurrence: DE)
  Receive Date: 20181119
  Receipt Date: 20210930
  Transmission Date: 20211014
  Serious: Yes (Other)
  Sender: FDA-Public Use
  Company Number: DE-ROCHE-2215136

PATIENT
  Age: 47 Year
  Sex: Male

DRUGS (12)
  1. COMIRNATY [Concomitant]
     Active Substance: TOZINAMERAN
     Indication: IMMUNISATION
     Dates: start: 20210428
  2. OCREVUS [Suspect]
     Active Substance: OCRELIZUMAB
     Dosage: MAINTENANCE DOSE
     Route: 042
     Dates: start: 20190408
  3. OCREVUS [Suspect]
     Active Substance: OCRELIZUMAB
     Route: 042
  4. OPIPRAMOL [Concomitant]
     Active Substance: OPIPRAMOL
  5. OCREVUS [Suspect]
     Active Substance: OCRELIZUMAB
     Dosage: 5TH MAINTENANCE DOSE
     Route: 042
     Dates: start: 20210714
  6. BACLOFEN. [Suspect]
     Active Substance: BACLOFEN
     Indication: PRODUCT USED FOR UNKNOWN INDICATION
     Route: 065
  7. FAMPYRA [Suspect]
     Active Substance: DALFAMPRIDINE
     Indication: PRODUCT USED FOR UNKNOWN INDICATION
     Route: 065
  8. OCREVUS [Suspect]
     Active Substance: OCRELIZUMAB
     Route: 042
     Dates: start: 20191030
  9. OCREVUS [Suspect]
     Active Substance: OCRELIZUMAB
     Indication: MULTIPLE SCLEROSIS
     Route: 042
     Dates: start: 20181024
  10. OCREVUS [Suspect]
     Active Substance: OCRELIZUMAB
     Route: 042
     Dates: start: 20181024
  11. D3 +K2 [Concomitant]
  12. RIVOTRIL [Concomitant]
     Active Substance: CLONAZEPAM

REACTIONS (9)
  - Drug ineffective [Unknown]
  - Hypotonia [Recovered/Resolved]
  - Multiple sclerosis relapse [Not Recovered/Not Resolved]
  - Arthralgia [Recovered/Resolved]
  - Antinuclear antibody increased [Recovered/Resolved]
  - Nasopharyngitis [Recovered/Resolved]
  - Tendonitis [Not Recovered/Not Resolved]
  - Posture abnormal [Recovered/Resolved]
  - Gait disturbance [Not Recovered/Not Resolved]

NARRATIVE: CASE EVENT DATE: 20181109
